FAERS Safety Report 21529055 (Version 1)
Quarter: 2022Q4

REPORT INFORMATION
  Report Type: Spontaneous
  Country: EG (occurrence: EG)
  Receive Date: 20221031
  Receipt Date: 20221031
  Transmission Date: 20230112
  Serious: Yes (Hospitalization, Other)
  Sender: FDA-Public Use
  Company Number: EG-ELI_LILLY_AND_COMPANY-EG202210011169

PATIENT
  Age: 60 Year
  Sex: Female

DRUGS (2)
  1. HUMULIN 70/30 [Suspect]
     Active Substance: INSULIN HUMAN
     Indication: Diabetes mellitus
     Dosage: 40 U, DAILY
     Route: 058
     Dates: start: 2018
  2. PLENDIL [Concomitant]
     Active Substance: FELODIPINE
     Indication: Product used for unknown indication

REACTIONS (4)
  - Chronic kidney disease [Not Recovered/Not Resolved]
  - Thrombosis [Recovering/Resolving]
  - Mobility decreased [Not Recovered/Not Resolved]
  - Injection site pain [Not Recovered/Not Resolved]

NARRATIVE: CASE EVENT DATE: 20211101
